FAERS Safety Report 6203338-0 (Version None)
Quarter: 2009Q2

REPORT INFORMATION
  Report Type: 
  Country: None (occurrence: None)
  Receive Date: 20090521
  Receipt Date: 20090507
  Transmission Date: 20091009
  Serious: Yes (Hospitalization)
  Sender: FDA-Public Use
  Company Number: 000822

PATIENT
  Sex: Female

DRUGS (1)
  1. NITROGLYCERIN [Suspect]

REACTIONS (2)
  - ATOPY [None]
  - PRURITUS GENERALISED [None]
